FAERS Safety Report 5813907-5 (Version None)
Quarter: 2008Q3

REPORT INFORMATION
  Report Type: 
  Country: None (occurrence: None)
  Receive Date: 20080714
  Receipt Date: 20080701
  Transmission Date: 20090109
  Serious: Yes (Life-Threatening, Hospitalization)
  Sender: FDA-Public Use
  Company Number: ADE# 08-103

PATIENT

DRUGS (1)
  1. AMIFOSTINE [Suspect]

REACTIONS (5)
  - HYPOTENSION [None]
  - NAUSEA [None]
  - RASH [None]
  - RENAL FAILURE [None]
  - VOMITING [None]
